FAERS Safety Report 8265141-X (Version None)
Quarter: 2012Q2

REPORT INFORMATION
  Report Type: 
  Country: None (occurrence: None)
  Receive Date: 20120406
  Receipt Date: 20120326
  Transmission Date: 20120825
  Serious: Yes (Other)
  Sender: FDA-Public Use
  Company Number: FR-ROCHE-1053090

PATIENT
  Sex: Male

DRUGS (6)
  1. OFLOXACIN [Suspect]
     Indication: PRODUCT USED FOR UNKNOWN INDICATION
     Route: 048
     Dates: start: 20101218, end: 20101220
  2. AMBROXOL [Suspect]
     Indication: PRODUCT USED FOR UNKNOWN INDICATION
     Dosage: AMBROXOL ARROW
     Dates: start: 20101218, end: 20101220
  3. SPAGULAX [Suspect]
     Indication: PRODUCT USED FOR UNKNOWN INDICATION
     Dates: start: 20101218, end: 20101220
  4. ACETAMINOPHEN AND TRAMADOL HCL [Suspect]
     Indication: PRODUCT USED FOR UNKNOWN INDICATION
     Dates: start: 20101218, end: 20101220
  5. CLONAZEPAM [Suspect]
     Indication: PRODUCT USED FOR UNKNOWN INDICATION
     Dates: start: 20101218, end: 20101220
  6. RABEPRAZOLE SODIUM [Suspect]
     Indication: PRODUCT USED FOR UNKNOWN INDICATION
     Dates: start: 20101218, end: 20101220

REACTIONS (2)
  - DYSPNOEA [None]
  - BACK PAIN [None]
